FAERS Safety Report 13605714 (Version 2)
Quarter: 2017Q2

REPORT INFORMATION
  Report Type: Other
  Country: CA (occurrence: CA)
  Receive Date: 20170602
  Receipt Date: 20170616
  Transmission Date: 20170830
  Serious: Yes (Other)
  Sender: FDA-Public Use
  Company Number: CA-SHIRE-CA201709267

PATIENT
  Age: 56 Year
  Sex: Male
  Weight: 71 kg

DRUGS (9)
  1. ELECTROLYTE SOLUTIONS              /07473201/ [Concomitant]
     Indication: PRODUCT USED FOR UNKNOWN INDICATION
     Dosage: 500 ML, 1X/DAY:QD
     Route: 065
  2. REVESTIVE [Suspect]
     Active Substance: TEDUGLUTIDE
     Indication: SHORT-BOWEL SYNDROME
     Dosage: 3.50 MG, 1X/DAY:QD
     Route: 058
     Dates: start: 20170419
  3. MCT OIL                            /01616601/ [Concomitant]
     Indication: PRODUCT USED FOR UNKNOWN INDICATION
     Dosage: UNK, UNKNOWN
     Route: 065
  4. OLESTYR [Concomitant]
     Indication: PRODUCT USED FOR UNKNOWN INDICATION
     Dosage: UNK, UNKNOWN
     Route: 065
  5. PROBIOTIC                          /06395501/ [Concomitant]
     Active Substance: BIFIDOBACTERIUM ANIMALIS SUBSP. LACTIS
     Indication: PRODUCT USED FOR UNKNOWN INDICATION
     Dosage: UNK, UNKNOWN
     Route: 065
  6. MARIJUANA [Concomitant]
     Active Substance: CANNABIS SATIVA SUBSP. INDICA TOP
     Indication: PRODUCT USED FOR UNKNOWN INDICATION
     Dosage: 0.5 G, 1X/DAY:QD (AT BEDTIME)
     Route: 065
  7. TPN [Concomitant]
     Active Substance: AMINO ACIDS\DEXTROSE\ELECTROLYTES NOS\SOYBEAN OIL
     Indication: PRODUCT USED FOR UNKNOWN INDICATION
     Dosage: UNK, UNKNOWN
     Route: 065
     Dates: end: 2015
  8. VITAMIN B12 [Concomitant]
     Active Substance: CYANOCOBALAMIN
     Indication: PRODUCT USED FOR UNKNOWN INDICATION
     Dosage: UNK, MONTHLY
     Route: 065
  9. LOMOTIL [Concomitant]
     Active Substance: ATROPINE SULFATE\DIPHENOXYLATE HYDROCHLORIDE
     Indication: PRODUCT USED FOR UNKNOWN INDICATION
     Dosage: UNK, UNKNOWN
     Route: 065

REACTIONS (26)
  - Weight fluctuation [Not Recovered/Not Resolved]
  - Musculoskeletal chest pain [Unknown]
  - Condition aggravated [Not Recovered/Not Resolved]
  - Abdominal discomfort [Unknown]
  - Faeces discoloured [Not Recovered/Not Resolved]
  - Energy increased [Unknown]
  - Muscle spasms [Not Recovered/Not Resolved]
  - Anal fissure [Recovered/Resolved]
  - Anxiety [Unknown]
  - Depressed mood [Not Recovered/Not Resolved]
  - Paraesthesia [Unknown]
  - Anorectal discomfort [Unknown]
  - Wrong technique in product usage process [Recovered/Resolved]
  - Cough [Unknown]
  - Anal incontinence [Not Recovered/Not Resolved]
  - Injection site pain [Unknown]
  - Diarrhoea [Unknown]
  - Haemorrhoids [Recovered/Resolved]
  - Haematochezia [Unknown]
  - Increased appetite [Recovering/Resolving]
  - Frequent bowel movements [Recovering/Resolving]
  - Hypoaesthesia [Unknown]
  - Flatulence [Not Recovered/Not Resolved]
  - Abdominal distension [Not Recovered/Not Resolved]
  - Headache [Unknown]
  - Somnolence [Not Recovered/Not Resolved]

NARRATIVE: CASE EVENT DATE: 2017
